FAERS Safety Report 7593194-0 (Version None)
Quarter: 2011Q2

REPORT INFORMATION
  Report Type: 
  Country: None (occurrence: None)
  Receive Date: 20110628
  Receipt Date: 20110615
  Transmission Date: 20111010
  Serious: Yes (Other)
  Sender: FDA-Public Use
  Company Number: US-2011-10412

PATIENT
  Age: 52 Year
  Sex: Female

DRUGS (5)
  1. COLONY STIMULATING FACTORS [Concomitant]
  2. BUSULFEX [Suspect]
     Indication: STEM CELL TRANSPLANT
  3. CYCLOPHOSPHAMIDE [Suspect]
     Indication: STEM CELL TRANSPLANT
  4. PHENYTOIN [Concomitant]
  5. ETOPOSIDE [Concomitant]

REACTIONS (2)
  - CENTRAL NERVOUS SYSTEM LYMPHOMA [None]
  - RECURRENT CANCER [None]
